FAERS Safety Report 6395224-0 (Version None)
Quarter: 2009Q4

REPORT INFORMATION
  Report Type: 
  Country: None (occurrence: None)
  Receive Date: 20091009
  Receipt Date: 20090925
  Transmission Date: 20100525
  Serious: Yes (Hospitalization)
  Sender: FDA-Public Use
  Company Number: BR-JNJFOC-20091001824

PATIENT
  Sex: Female
  Weight: 67.7 kg

DRUGS (9)
  1. TRAMADOL HYDROCHLORIDE [Suspect]
     Indication: DRUG USE FOR UNKNOWN INDICATION
     Route: 042
  2. TRAMADOL HYDROCHLORIDE [Suspect]
     Route: 048
  3. RIVOTRIL [Suspect]
     Indication: BIPOLAR DISORDER
     Route: 048
  4. RIVOTRIL [Suspect]
     Route: 048
  5. DEPAKOTE [Concomitant]
     Indication: BIPOLAR DISORDER
     Route: 065
  6. TRILEPTAL [Concomitant]
     Indication: BIPOLAR DISORDER
     Route: 065
  7. ENALAPRIL MALEATE [Concomitant]
     Indication: HYPERTENSION
     Route: 065
  8. ALL OTHER THERAPEUTIC PRODUCTS [Concomitant]
     Route: 065
  9. TYLENOL (CAPLET) [Concomitant]
     Route: 065

REACTIONS (9)
  - ANXIETY [None]
  - CHILLS [None]
  - DIARRHOEA [None]
  - DIZZINESS [None]
  - HYPERHIDROSIS [None]
  - MEMORY IMPAIRMENT [None]
  - NAUSEA [None]
  - PAIN [None]
  - VOMITING [None]
